FAERS Safety Report 14878849 (Version 1)
Quarter: 2018Q2

REPORT INFORMATION
  Report Type: Spontaneous
  Country: FR (occurrence: FR)
  Receive Date: 20180511
  Receipt Date: 20180511
  Transmission Date: 20180711
  Serious: Yes (Other)
  Sender: FDA-Public Use
  Company Number: FR-SUN PHARMACEUTICAL INDUSTRIES LTD-2018R1-172499

PATIENT
  Age: 69 Year
  Sex: Male

DRUGS (6)
  1. METFORMINE [Suspect]
     Active Substance: METFORMIN HYDROCHLORIDE
     Indication: DIABETES MELLITUS
     Dosage: UNK
     Route: 048
     Dates: start: 2011
  2. XARELTO [Suspect]
     Active Substance: RIVAROXABAN
     Indication: ARRHYTHMIA
     Dosage: UNK
     Route: 048
     Dates: start: 2011
  3. BISOPROLOL (FUMARATE ACIDE DE) [Suspect]
     Active Substance: BISOPROLOL FUMARATE
     Indication: CORONARY ARTERY DISEASE
     Dosage: UNK
     Route: 048
     Dates: start: 2011
  4. COVERAM [Suspect]
     Active Substance: AMLODIPINE\PERINDOPRIL
     Indication: HYPERTENSION
     Dosage: UNK
     Route: 048
     Dates: start: 2011
  5. JANUVIA [Suspect]
     Active Substance: SITAGLIPTIN PHOSPHATE
     Indication: DIABETES MELLITUS
     Dosage: UNK
     Route: 048
     Dates: start: 2011
  6. LORAZEPAM. [Suspect]
     Active Substance: LORAZEPAM
     Indication: PRODUCT USED FOR UNKNOWN INDICATION
     Dosage: UNK
     Route: 048
     Dates: start: 2011

REACTIONS (2)
  - Rash papular [Recovering/Resolving]
  - Toxic skin eruption [Recovering/Resolving]

NARRATIVE: CASE EVENT DATE: 201609
